FAERS Safety Report 7061768-1 (Version None)
Quarter: 2010Q4

REPORT INFORMATION
  Report Type: 
  Country: None (occurrence: None)
  Receive Date: 20101026
  Receipt Date: 20100907
  Transmission Date: 20110411
  Serious: No
  Sender: FDA-Public Use
  Company Number: US-BAYER-201021189BCC

PATIENT
  Age: 72 Year
  Sex: Female
  Weight: 64 kg

DRUGS (8)
  1. ALEVE [Suspect]
     Indication: SPINAL FRACTURE
     Dosage: TOTAL DAILY DOSE: 440 MG  UNIT DOSE: 220 MG
     Route: 048
     Dates: start: 20100906, end: 20100906
  2. ALEVE [Suspect]
     Dosage: AS USED: 220 MG  UNIT DOSE: 220 MG
     Route: 048
     Dates: start: 20100907
  3. PREDNISONE [Concomitant]
  4. METOPROLOL [Concomitant]
  5. PREVACID [Concomitant]
  6. PRAVASTATIN [Concomitant]
  7. TRAZODONE [Concomitant]
  8. SULPHURMATE [Concomitant]

REACTIONS (1)
  - POST-TRAUMATIC PAIN [None]
